FAERS Safety Report 5023204-6 (Version None)
Quarter: 2006Q2

REPORT INFORMATION
  Report Type: 
  Country: None (occurrence: None)
  Receive Date: 20060605
  Receipt Date: 20060523
  Transmission Date: 20061013
  Serious: Yes (Other)
  Sender: FDA-Public Use
  Company Number: GXKR2006IT02765

PATIENT
  Age: 64 Year
  Sex: Female

DRUGS (1)
  1. ENALAPRIL MALEATE [Suspect]
     Indication: HYPERTENSION
     Dosage: 10 MG, QD

REACTIONS (7)
  - COUGH [None]
  - NASAL CONGESTION [None]
  - OXYGEN SATURATION DECREASED [None]
  - SLEEP APNOEA SYNDROME [None]
  - SLEEP STUDY ABNORMAL [None]
  - SNORING [None]
  - SOMNOLENCE [None]
